FAERS Safety Report 8318725 (Version 2)
Quarter: 2013Q1

REPORT INFORMATION
  Report Type: Spontaneous
  Country: US (occurrence: US)
  Receive Date: 20120103
  Receipt Date: 20130220
  Transmission Date: 20140127
  Serious: Yes (Life-Threatening, Congenital Anomaly, Other)
  Sender: FDA-Public Use
  Company Number: US-PFIZER INC-2011288487

PATIENT
  Sex: Male

DRUGS (10)
  1. ZOLOFT [Suspect]
     Dosage: UNK
     Route: 064
     Dates: start: 1996
  2. PRENATAL VITAMINS [Concomitant]
     Dosage: UNK
     Route: 064
  3. TYLENOL [Concomitant]
     Dosage: UNK
     Route: 064
  4. METRONIDAZOLE [Concomitant]
     Dosage: UNK
     Route: 064
  5. METROGEL [Concomitant]
     Dosage: UNK
     Route: 064
  6. GYNAZOLE-1 [Concomitant]
     Dosage: UNK
     Route: 064
  7. AZITHROMYCIN [Concomitant]
     Dosage: UNK
     Route: 064
  8. VICODIN [Concomitant]
     Dosage: UNK
     Route: 064
  9. AMBIEN [Concomitant]
     Dosage: UNK
     Route: 064
  10. DEXAMETHASONE [Concomitant]
     Dosage: UNK
     Route: 064

REACTIONS (3)
  - Maternal exposure timing unspecified [Unknown]
  - Patent ductus arteriosus [Unknown]
  - Premature baby [Unknown]
